FAERS Safety Report 15484466 (Version 5)
Quarter: 2019Q1

REPORT INFORMATION
  Report Type: Report from Study
  Country: ZA (occurrence: ZA)
  Receive Date: 20181010
  Receipt Date: 20190226
  Transmission Date: 20190417
  Serious: Yes (Life-Threatening, Hospitalization, Other)
  Sender: FDA-Public Use
  Company Number: ZA-SA-2018SA278634

PATIENT
  Age: 61 Year
  Sex: Female

DRUGS (14)
  1. INSULIN GLULISINE [Suspect]
     Active Substance: INSULIN GLULISINE
     Dosage: UNK, TID, 16 UNITS IN BREAKFAST-14 UNITS IN LUNCH-16 UNITS IN SUPPER
     Dates: start: 20181003
  2. LASIX [Concomitant]
     Active Substance: FUROSEMIDE
     Dosage: 40 MG, QD
     Dates: start: 20131003
  3. OPTISULIN (INSULIN GLARGINE) [Suspect]
     Active Substance: INSULIN GLARGINE
     Indication: TYPE 2 DIABETES MELLITUS
     Dosage: 54 U
     Route: 065
     Dates: start: 20131001
  4. OPTISULIN (INSULIN GLARGINE) [Suspect]
     Active Substance: INSULIN GLARGINE
     Dosage: 50 IU, QD (AT NIGHT)
     Dates: start: 20131003
  5. DISPRIN CARDIOCARE [Concomitant]
     Active Substance: ASPIRIN
     Dosage: 100 MG, QD
     Dates: start: 20171010
  6. SPIRACTIN (PIMECLONE HYDROCHLORIDE) [Concomitant]
     Active Substance: PIMECLONE HYDROCHLORIDE
     Dosage: 25 MG, BID (BEFORE SUPPER AND BEFORE BREAKFAST)
     Dates: start: 20181003
  7. BISOPROLOL HYDROCHLOROTHIAZIDE CRISTERS [Concomitant]
     Active Substance: BISOPROLOL FUMARATE\HYDROCHLOROTHIAZIDE
     Dosage: 2.5 MG, QD
     Dates: start: 20171010
  8. INSULIN GLULISINE [Suspect]
     Active Substance: INSULIN GLULISINE
     Dosage: BEFORE SUPPER- 16 UNITS, BEFORE LUNCH-14 AND BEFORE BREAKFAST-16 UNITS
     Dates: start: 20131003
  9. TWYNSTA [Concomitant]
     Active Substance: AMLODIPINE BESYLATE\TELMISARTAN
     Dosage: 80 MG, QD
     Dates: start: 20131003
  10. DISPRIN CARDIOCARE [Concomitant]
     Active Substance: ASPIRIN
     Dosage: 2.5 MG, QD
     Dates: start: 20171010
  11. CARLOC [Concomitant]
     Active Substance: CARVEDILOL
     Dosage: 25 MG, QD
     Dates: start: 20131003
  12. ASPAVOR [Concomitant]
     Active Substance: ATORVASTATIN
     Dosage: 10 MG, HS
     Dates: start: 20131003
  13. INSULIN GLULISINE [Suspect]
     Active Substance: INSULIN GLULISINE
     Indication: TYPE 2 DIABETES MELLITUS
     Dosage: 16-12-14 U, TID
     Dates: start: 20131003
  14. OPTISULIN (INSULIN GLARGINE) [Suspect]
     Active Substance: INSULIN GLARGINE
     Dosage: 58 U, HS (AT BED TIME)
     Dates: start: 20131001

REACTIONS (8)
  - Tooth abscess [Recovered/Resolved]
  - Hypoglycaemia [Recovered/Resolved]
  - Malaise [Not Recovered/Not Resolved]
  - Injection site pain [Not Recovered/Not Resolved]
  - Eye haemorrhage [Not Recovered/Not Resolved]
  - Ill-defined disorder [Not Recovered/Not Resolved]
  - Cystitis [Not Recovered/Not Resolved]
  - Injection site hypersensitivity [Not Recovered/Not Resolved]

NARRATIVE: CASE EVENT DATE: 20181028
